FAERS Safety Report 21313985 (Version 2)
Quarter: 2022Q3

REPORT INFORMATION
  Report Type: Spontaneous
  Country: FR (occurrence: FR)
  Receive Date: 20220909
  Receipt Date: 20220922
  Transmission Date: 20221026
  Serious: Yes (Death, Other)
  Sender: FDA-Public Use
  Company Number: FR-SA-SAC20220823001913

PATIENT

DRUGS (1)
  1. ALDURAZYME [Suspect]
     Active Substance: LARONIDASE
     Indication: Mucopolysaccharidosis I
     Dosage: 9 DF, UNK
     Route: 042
     Dates: end: 20220730

REACTIONS (5)
  - Glaucoma [Fatal]
  - COVID-19 [Fatal]
  - General physical health deterioration [Fatal]
  - Cardiac valve disease [Fatal]
  - Asthenia [Unknown]

NARRATIVE: CASE EVENT DATE: 20220101
